FAERS Safety Report 7806866-7 (Version None)
Quarter: 2011Q4

REPORT INFORMATION
  Report Type: 
  Country: None (occurrence: None)
  Receive Date: 20111011
  Receipt Date: 20111005
  Transmission Date: 20120403
  Serious: Yes (Hospitalization)
  Sender: FDA-Public Use
  Company Number: US-AMGEN-USASP2011051493

PATIENT
  Age: 54 Year
  Sex: Female

DRUGS (3)
  1. ENBREL [Suspect]
     Indication: ANKYLOSING SPONDYLITIS
     Dosage: 50 MG, QWK
     Dates: start: 20080116, end: 20081203
  2. METHOTREXATE [Concomitant]
     Dosage: UNK
     Dates: start: 20080501
  3. HUMIRA [Concomitant]
     Indication: ANKYLOSING SPONDYLITIS
     Dosage: UNK

REACTIONS (8)
  - CONVULSION [None]
  - PROCEDURAL COMPLICATION [None]
  - ANKYLOSING SPONDYLITIS [None]
  - DIARRHOEA [None]
  - MALAISE [None]
  - ROTATOR CUFF SYNDROME [None]
  - VOMITING [None]
  - KNEE ARTHROPLASTY [None]
